FAERS Safety Report 11177124 (Version 1)
Quarter: 2015Q2

REPORT INFORMATION
  Report Type: Spontaneous
  Country: CA (occurrence: None)
  Receive Date: 20150608
  Receipt Date: 20150608
  Transmission Date: 20150821
  Serious: No
  Sender: FDA-Public Use
  Company Number: 1615146

PATIENT
  Age: 40 Year
  Sex: Female

DRUGS (5)
  1. CYCLOPHOSPHAMIDE. [Concomitant]
     Active Substance: CYCLOPHOSPHAMIDE
  2. DOCETAXEL. [Concomitant]
     Active Substance: DOCETAXEL
  3. ACETAMINOPHEN. [Concomitant]
     Active Substance: ACETAMINOPHEN
  4. IBUPROFEN. [Concomitant]
     Active Substance: IBUPROFEN
  5. TAMOXIFEN (NON-SPECIFIC) [Suspect]
     Active Substance: TAMOXIFEN
     Indication: BREAST CANCER
     Route: 048

REACTIONS (1)
  - Acute cutaneous lupus erythematosus [None]
